FAERS Safety Report 17196394 (Version 7)
Quarter: 2020Q4

REPORT INFORMATION
  Report Type: Report from Study
  Country: GB (occurrence: GB)
  Receive Date: 20191224
  Receipt Date: 20201121
  Transmission Date: 20210113
  Serious: Yes (Other)
  Sender: FDA-Public Use
  Company Number: NVSC2019GB078125

PATIENT
  Age: 61 Year
  Sex: Female

DRUGS (3)
  1. COSENTYX [Suspect]
     Active Substance: SECUKINUMAB
     Indication: PSORIATIC ARTHROPATHY
     Dosage: 300 MG, QMO
     Route: 058
     Dates: start: 20190925
  2. THYROXINE [Concomitant]
     Active Substance: LEVOTHYROXINE
     Indication: PRODUCT USED FOR UNKNOWN INDICATION
     Dosage: UNK
     Route: 065
  3. COSENTYX [Suspect]
     Active Substance: SECUKINUMAB
     Indication: PSORIASIS
     Dosage: 300 MG, QMO
     Route: 058
     Dates: start: 2017

REACTIONS (16)
  - Ear pain [Unknown]
  - Depression [Unknown]
  - Cough [Unknown]
  - Haemorrhage [Unknown]
  - Drug interaction [Unknown]
  - Headache [Unknown]
  - Stress [Unknown]
  - Alopecia [Not Recovered/Not Resolved]
  - Therapeutic response decreased [Unknown]
  - Oropharyngeal pain [Unknown]
  - Mental status changes [Unknown]
  - Drug ineffective [Unknown]
  - Psoriasis [Unknown]
  - Rhinorrhoea [Unknown]
  - Colitis ulcerative [Unknown]
  - Lymphadenopathy [Unknown]

NARRATIVE: CASE EVENT DATE: 201912
